FAERS Safety Report 8836898 (Version 2)
Quarter: 2012Q4

REPORT INFORMATION
  Report Type: 
  Country: US (occurrence: US)
  Receive Date: 20121012
  Receipt Date: 20121019
  Transmission Date: 20130627
  Serious: Yes (Other)
  Sender: FDA-Public Use
  Company Number: US-009507513-1210USA003834

PATIENT
  Sex: Female

DRUGS (6)
  1. ZOCOR [Suspect]
     Dosage: 10 mg, qd
     Route: 048
  2. ZOCOR [Suspect]
     Dosage: UNK
  3. VITAMINS (UNSPECIFIED) [Concomitant]
  4. CHONDROITIN SULFATE SODIUM (+) GLUCOSAMINE SULFATE [Concomitant]
  5. TUMS [Concomitant]
     Dosage: UNK, prn
  6. QUINCY BIOSCIENCE PREVAGEN [Concomitant]

REACTIONS (2)
  - Cognitive disorder [Recovered/Resolved]
  - Memory impairment [Recovered/Resolved]
